FAERS Safety Report 15855260 (Version 1)
Quarter: 2019Q1

REPORT INFORMATION
  Report Type: Spontaneous
  Country: CN (occurrence: CN)
  Receive Date: 20190122
  Receipt Date: 20190122
  Transmission Date: 20190417
  Serious: Yes (Other)
  Sender: FDA-Public Use
  Company Number: PHHY2019CN006931

PATIENT
  Age: 34 Year
  Sex: Female

DRUGS (6)
  1. ACTINOMYCIN D [Suspect]
     Active Substance: DACTINOMYCIN
     Indication: OVARIAN GERM CELL TUMOUR MIXED
     Route: 065
  2. CISPLATIN. [Suspect]
     Active Substance: CISPLATIN
     Indication: OVARIAN GERM CELL TUMOUR MIXED
     Route: 065
  3. METHOTREXATE. [Suspect]
     Active Substance: METHOTREXATE
     Indication: OVARIAN GERM CELL TUMOUR MIXED
     Route: 065
  4. VINCRISTINE [Suspect]
     Active Substance: VINCRISTINE
     Indication: OVARIAN GERM CELL TUMOUR MIXED
     Route: 065
  5. ETOPOSIDE. [Suspect]
     Active Substance: ETOPOSIDE
     Indication: OVARIAN GERM CELL TUMOUR MIXED
     Route: 065
  6. CYCLOPHOSPHAMIDE. [Suspect]
     Active Substance: CYCLOPHOSPHAMIDE
     Indication: OVARIAN GERM CELL TUMOUR MIXED
     Route: 065

REACTIONS (5)
  - Bone marrow failure [Unknown]
  - Metastatic neoplasm [Unknown]
  - Mesenteric neoplasm [Unknown]
  - Malignant neoplasm progression [Unknown]
  - Nodule [Unknown]
